FAERS Safety Report 20562696 (Version 4)
Quarter: 2022Q2

REPORT INFORMATION
  Report Type: Report from Study
  Country: CN (occurrence: CN)
  Receive Date: 20220307
  Receipt Date: 20220524
  Transmission Date: 20220721
  Serious: Yes (Death, Life-Threatening, Hospitalization, Other)
  Sender: FDA-Public Use
  Company Number: CN-BRISTOL-MYERS SQUIBB COMPANY-BMS-2022-032236

PATIENT
  Age: 71 Year
  Sex: Female
  Weight: 53.5 kg

DRUGS (3)
  1. CISPLATIN [Suspect]
     Active Substance: CISPLATIN
     Indication: Transitional cell cancer of the renal pelvis and ureter
     Route: 042
     Dates: start: 20220217
  2. GEMCITABINE HYDROCHLORIDE [Suspect]
     Active Substance: GEMCITABINE HYDROCHLORIDE
     Indication: Transitional cell carcinoma
     Dosage: THE MOST RECENT DOSE ON -23-FEB-2022 (1497.2 MG)
     Route: 042
     Dates: start: 20220216, end: 20220223
  3. CLOFENAMIDE [Concomitant]
     Active Substance: CLOFENAMIDE
     Indication: Product used for unknown indication
     Dosage: 80 MILLIGRAM
     Route: 065
     Dates: start: 20220211

REACTIONS (3)
  - Hypovolaemic shock [Fatal]
  - Myelosuppression [Not Recovered/Not Resolved]
  - Electrolyte imbalance [Recovering/Resolving]

NARRATIVE: CASE EVENT DATE: 20220301
